FAERS Safety Report 23907455 (Version 1)
Quarter: 2024Q2

REPORT INFORMATION
  Report Type: Spontaneous
  Country: VE (occurrence: VE)
  Receive Date: 20240528
  Receipt Date: 20240528
  Transmission Date: 20240715
  Serious: Yes (Other)
  Sender: FDA-Public Use
  Company Number: VE-002147023-NVSC2022VE260485

PATIENT
  Sex: Male

DRUGS (1)
  1. GLIVEC [Suspect]
     Active Substance: IMATINIB MESYLATE
     Indication: Chronic myeloid leukaemia
     Dosage: 400 MG (4 X 100MG)
     Route: 065

REACTIONS (5)
  - Haemoglobin increased [Unknown]
  - Platelet count increased [Unknown]
  - White blood cell count increased [Unknown]
  - Adverse event [Unknown]
  - Product availability issue [Unknown]
